FAERS Safety Report 23313900 (Version 3)
Quarter: 2024Q1

REPORT INFORMATION
  Report Type: Report from Study
  Country: CL (occurrence: CL)
  Receive Date: 20231219
  Receipt Date: 20240115
  Transmission Date: 20240410
  Serious: Yes (Other)
  Sender: FDA-Public Use
  Company Number: CL-002147023-NVSC2023CL133295

PATIENT
  Age: 32 Year
  Sex: Male

DRUGS (5)
  1. KESIMPTA [Suspect]
     Active Substance: OFATUMUMAB
     Indication: Relapsing-remitting multiple sclerosis
     Dosage: 20 MG, QW
     Route: 058
     Dates: start: 20230601
  2. KESIMPTA [Suspect]
     Active Substance: OFATUMUMAB
     Dosage: UNK (THIRD LOADING DOSE OF KESIMPTA)
     Route: 065
     Dates: start: 20230615
  3. KESIMPTA [Suspect]
     Active Substance: OFATUMUMAB
     Dosage: 20 MG, QMO
     Route: 058
  4. KESIMPTA [Suspect]
     Active Substance: OFATUMUMAB
     Dosage: 20 MG, QMO
     Route: 058
     Dates: start: 20231107
  5. KESIMPTA [Suspect]
     Active Substance: OFATUMUMAB
     Dosage: 20 MG (20MG/0.4 ML), QMO
     Route: 058
     Dates: start: 20230601

REACTIONS (19)
  - Multiple sclerosis relapse [Unknown]
  - Headache [Recovered/Resolved]
  - Vertigo [Unknown]
  - Nausea [Unknown]
  - Injection site haematoma [Unknown]
  - Injection site bruising [Unknown]
  - Nasopharyngitis [Recovered/Resolved]
  - Injection site pain [Unknown]
  - Fatigue [Unknown]
  - Dizziness [Unknown]
  - Device difficult to use [Unknown]
  - Incorrect dose administered by device [Unknown]
  - Wrong technique in device usage process [Unknown]
  - Gait disturbance [Unknown]
  - Malaise [Unknown]
  - Hypoaesthesia [Unknown]
  - Limb discomfort [Unknown]
  - Injection related reaction [Unknown]
  - Dysphonia [Unknown]

NARRATIVE: CASE EVENT DATE: 20230602
